FAERS Safety Report 5904205-X (Version None)
Quarter: 2008Q3

REPORT INFORMATION
  Report Type: 
  Country: None (occurrence: None)
  Receive Date: 20080930
  Receipt Date: 20080930
  Transmission Date: 20090109
  Serious: Yes (Life-Threatening, Hospitalization)
  Sender: FDA-Public Use
  Company Number: None

PATIENT
  Age: 50 Year
  Sex: Female
  Weight: 90 kg

DRUGS (1)
  1. CEFUROXIME [Suspect]
     Indication: RESPIRATORY TRACT INFECTION
     Dosage: 1-2X DAILY AS NEEDED
     Dates: start: 20080819, end: 20080913

REACTIONS (12)
  - ANAPHYLACTIC REACTION [None]
  - DRUG HYPERSENSITIVITY [None]
  - EYE ROLLING [None]
  - FOAMING AT MOUTH [None]
  - LIP SWELLING [None]
  - PRURITUS [None]
  - RASH ERYTHEMATOUS [None]
  - RESPIRATORY ARREST [None]
  - SKIN DISCOLOURATION [None]
  - SWELLING FACE [None]
  - SWOLLEN TONGUE [None]
  - THROAT IRRITATION [None]
